FAERS Safety Report 5146024-0 (Version None)
Quarter: 2006Q4

REPORT INFORMATION
  Report Type: 
  Country: None (occurrence: None)
  Receive Date: 20061102
  Receipt Date: 20061031
  Transmission Date: 20070319
  Serious: Yes (Hospitalization, Disabling)
  Sender: FDA-Public Use
  Company Number: TCI2006A03228

PATIENT
  Age: 29 Year
  Sex: Female

DRUGS (4)
  1. LEUPROLIDE ACETATE [Suspect]
     Indication: ENDOMETRIOSIS
     Dosage: SEE IMAGE
     Route: 058
     Dates: start: 20050401, end: 20050930
  2. LEUPROLIDE ACETATE [Suspect]
     Indication: PELVIC ABSCESS
     Dosage: SEE IMAGE
     Route: 058
     Dates: start: 20050401, end: 20050930
  3. LEUPROLIDE ACETATE [Suspect]
     Indication: ENDOMETRIOSIS
     Dosage: SEE IMAGE
     Route: 058
     Dates: start: 20051206, end: 20060428
  4. LEUPROLIDE ACETATE [Suspect]
     Indication: PELVIC ABSCESS
     Dosage: SEE IMAGE
     Route: 058
     Dates: start: 20051206, end: 20060428

REACTIONS (8)
  - ABSCESS [None]
  - HYPERTHYROIDISM [None]
  - INTESTINAL OBSTRUCTION [None]
  - OVARIAN ENLARGEMENT [None]
  - OVARIAN HAEMORRHAGE [None]
  - OVARIAN HYPERSTIMULATION SYNDROME [None]
  - PELVIC INFECTION [None]
  - POLYCYSTIC OVARIES [None]
